FAERS Safety Report 8535193-8 (Version None)
Quarter: 2012Q3

REPORT INFORMATION
  Report Type: 
  Country: None (occurrence: None)
  Receive Date: 20120724
  Receipt Date: 20120720
  Transmission Date: 20120928
  Serious: Yes (Death, Hospitalization)
  Sender: FDA-Public Use
  Company Number: CHPA2012US015628

PATIENT
  Age: 71 Year
  Sex: Male

DRUGS (2)
  1. ANTIEPILEPTICS [Concomitant]
     Indication: CONVULSION
     Dosage: UNK, UNK
  2. BENEFIBER W/ WHEAT DEXTRIN [Suspect]
     Indication: CONSTIPATION
     Dosage: 1 TABLESPOON PER DAY IN DIVIDED DOSES
     Route: 048
     Dates: start: 20060101

REACTIONS (5)
  - CEREBRAL HAEMORRHAGE [None]
  - OFF LABEL USE [None]
  - CONCOMITANT DISEASE AGGRAVATED [None]
  - ARTERIOVENOUS MALFORMATION [None]
  - FALL [None]
